FAERS Safety Report 21990918 (Version 1)
Quarter: 2023Q1

REPORT INFORMATION
  Report Type: Spontaneous
  Country: US (occurrence: None)
  Receive Date: 20230213
  Receipt Date: 20230213
  Transmission Date: 20230418
  Serious: Yes (Life-Threatening, Disabling)
  Sender: FDA-Public Use
  Company Number: None

PATIENT
  Age: 68 Year
  Sex: Female
  Weight: 58.5 kg

DRUGS (8)
  1. METHYLPREDNISOLONE [Suspect]
     Active Substance: METHYLPREDNISOLONE
     Indication: Costochondritis
     Dosage: OTHER QUANTITY : 21 TABLET(S);?OTHER FREQUENCY : DOSE PACK;?
     Route: 048
     Dates: start: 20230130, end: 20230203
  2. LEVOTHYROXINE [Concomitant]
     Active Substance: LEVOTHYROXINE
  3. CRESTOR [Concomitant]
  4. LISINOPRIL [Concomitant]
     Active Substance: LISINOPRIL
  5. MOBIC [Concomitant]
     Active Substance: MELOXICAM
  6. CALCIUM [Concomitant]
  7. VITAMIN D NOS [Concomitant]
     Active Substance: VITAMIN D NOS
  8. FISH OIL\OMEGA-3 FATTY ACIDS [Concomitant]
     Active Substance: FISH OIL\OMEGA-3 FATTY ACIDS

REACTIONS (10)
  - Feeling abnormal [None]
  - Confusional state [None]
  - Muscle spasms [None]
  - Fatigue [None]
  - Social avoidant behaviour [None]
  - Blood pressure increased [None]
  - Therapy cessation [None]
  - Product quality issue [None]
  - Palpitations [None]
  - Heart rate increased [None]

NARRATIVE: CASE EVENT DATE: 20230203
